FAERS Safety Report 15113239 (Version 2)
Quarter: 2018Q3

REPORT INFORMATION
  Report Type: Spontaneous
  Country: JP (occurrence: JP)
  Receive Date: 20180706
  Receipt Date: 20180801
  Transmission Date: 20181010
  Serious: Yes (Other)
  Sender: FDA-Public Use
  Company Number: JP-AMGEN-JPNSP2018020462

PATIENT
  Age: 14 Year
  Sex: Female

DRUGS (20)
  1. NESP [Suspect]
     Active Substance: DARBEPOETIN ALFA
     Dosage: 120 MUG, Q2WK
     Route: 042
     Dates: start: 20151110, end: 20160202
  2. AMLODIPIN [Concomitant]
     Active Substance: AMLODIPINE BESYLATE
     Indication: HYPERTENSION
     Dosage: 5 MG, BID
     Route: 048
     Dates: start: 20140403
  3. PRECIPITATED CALCIUM CARBONATE [Concomitant]
     Active Substance: CALCIUM CARBONATE
     Indication: CHRONIC KIDNEY DISEASE-MINERAL AND BONE DISORDER
     Dosage: 3000 MG, BID (RIGHT AFTER LUNCH AND DINNER)
     Route: 048
     Dates: start: 20150108
  4. KIKLIN [Concomitant]
     Active Substance: BIXALOMER
     Indication: CHRONIC KIDNEY DISEASE-MINERAL AND BONE DISORDER
     Dosage: 7500 MG (3000 MG IN THE AFTERNOON, 4500 MG IN THE EVENING)
     Route: 048
     Dates: start: 20170808
  5. NICOPELIQ [Concomitant]
     Active Substance: CALCIUM CHLORIDE\ICODEXTRIN\MAGNESIUM CHLORIDE\SODIUM CHLORIDE\SODIUM LACTATE
     Indication: PERITONEAL DIALYSIS
     Dosage: UNK
  6. CANDESARTAN. [Concomitant]
     Active Substance: CANDESARTAN
     Dosage: 8 MG, QD
     Route: 048
  7. NESP [Suspect]
     Active Substance: DARBEPOETIN ALFA
     Indication: NEPHROGENIC ANAEMIA
     Dosage: 180 MUG, Q2WK
     Route: 040
     Dates: start: 20171004, end: 20171213
  8. NESP [Suspect]
     Active Substance: DARBEPOETIN ALFA
     Dosage: 180 MUG, Q4WK
     Route: 042
     Dates: start: 20160308, end: 20170905
  9. LONGES [Concomitant]
     Active Substance: LISINOPRIL
     Indication: HYPERTENSION
     Dosage: 5 MG, QD (RIGHT AFTER BREAKFAST)
     Route: 048
     Dates: start: 20140402
  10. MIDPELIQ [Concomitant]
     Active Substance: CALCIUM CHLORIDE\DEXTROSE\MAGNESIUM CHLORIDE\SODIUM CHLORIDE\SODIUM LACTATE
     Indication: PERITONEAL DIALYSIS
     Dosage: UNK
  11. NESP [Suspect]
     Active Substance: DARBEPOETIN ALFA
     Dosage: 120 MCG AND 60 MCG, Q2WK WEEKS ALTERNATELY
     Route: 042
     Dates: start: 20150303
  12. GENTAMICIN SULFATE. [Concomitant]
     Active Substance: GENTAMICIN SULFATE
     Dosage: UNK, QD
     Route: 061
  13. LAXOBERON [Concomitant]
     Active Substance: SODIUM PICOSULFATE
     Indication: CONSTIPATION
     Dosage: 2.5 MG, QD (RIGHT AFTER DINNER)
     Route: 048
     Dates: start: 20170209
  14. CARDENALIN [Concomitant]
     Active Substance: DOXAZOSIN MESYLATE
     Dosage: 1 MG, QD (RIGHT AFTER BREAKFAST)
     Route: 048
  15. BRUFEN [Concomitant]
     Active Substance: IBUPROFEN
     Indication: HEADACHE
     Dosage: 200 MG, AS NECESSARY
     Route: 048
  16. NESP [Suspect]
     Active Substance: DARBEPOETIN ALFA
     Dosage: 120 MUG, QWK
     Route: 042
  17. PRAVASTATIN SODIUM. [Concomitant]
     Active Substance: PRAVASTATIN SODIUM
     Indication: HYPERLIPIDAEMIA
     Dosage: 5 MG, QD (RIGHT AFTER BREAKFAST)
     Route: 048
     Dates: start: 20160308
  18. NESP [Suspect]
     Active Substance: DARBEPOETIN ALFA
     Dosage: 40 MUG, Q2WK
     Route: 042
     Dates: start: 201405
  19. ALFAROL [Concomitant]
     Active Substance: ALFACALCIDOL
     Indication: CHRONIC KIDNEY DISEASE-MINERAL AND BONE DISORDER
     Dosage: 0.75 UG, QD (RIGHT AFTER BREAKFAST)
     Route: 048
     Dates: start: 20161018
  20. KINDAVATE [Concomitant]
     Active Substance: CLOBETASONE BUTYRATE
     Dosage: UNK, BID
     Route: 061

REACTIONS (2)
  - Drug ineffective [Unknown]
  - Nephrogenic anaemia [Recovering/Resolving]

NARRATIVE: CASE EVENT DATE: 20171209
